FAERS Safety Report 7989215-3 (Version None)
Quarter: 2011Q4

REPORT INFORMATION
  Report Type: 
  Country: None (occurrence: None)
  Receive Date: 20111215
  Receipt Date: 20111215
  Transmission Date: 20120403
  Serious: No
  Sender: FDA-Public Use
  Company Number: None

PATIENT
  Age: 18 Year
  Sex: Female

DRUGS (1)
  1. MINOCYCLINE HCL [Suspect]
     Dates: start: 20100806, end: 20101022

REACTIONS (8)
  - SERUM FERRITIN INCREASED [None]
  - IRON DEFICIENCY ANAEMIA [None]
  - HEPATIC FIBROSIS [None]
  - LIVER INJURY [None]
  - UPPER RESPIRATORY TRACT INFECTION [None]
  - ANTINUCLEAR ANTIBODY POSITIVE [None]
  - BLOOD IMMUNOGLOBULIN G INCREASED [None]
  - AUTOIMMUNE HEPATITIS [None]
